FAERS Safety Report 12341017 (Version 1)
Quarter: 2016Q2

REPORT INFORMATION
  Report Type: Spontaneous
  Country: US (occurrence: None)
  Receive Date: 20160505
  Receipt Date: 20160505
  Transmission Date: 20160815
  Serious: No
  Sender: FDA-Public Use
  Company Number: None

PATIENT
  Age: 74 Year
  Sex: Male
  Weight: 90.8 kg

DRUGS (2)
  1. LOSARTAN. [Suspect]
     Active Substance: LOSARTAN
     Indication: HYPERTENSION
     Route: 048
     Dates: start: 20150402, end: 20150709
  2. LOSARTAN. [Suspect]
     Active Substance: LOSARTAN
     Indication: DIABETES MELLITUS
     Route: 048
     Dates: start: 20150402, end: 20150709

REACTIONS (3)
  - Angioedema [None]
  - Anaphylactic reaction [None]
  - Rash [None]

NARRATIVE: CASE EVENT DATE: 20150709
